FAERS Safety Report 21361511 (Version 1)
Quarter: 2022Q3

REPORT INFORMATION
  Report Type: Spontaneous
  Country: CN (occurrence: CN)
  Receive Date: 20220921
  Receipt Date: 20220921
  Transmission Date: 20221027
  Serious: Yes (Other)
  Sender: FDA-Public Use
  Company Number: CN-009507513-2209CHN006117

PATIENT
  Age: 88 Year
  Sex: Male
  Weight: 60 kg

DRUGS (3)
  1. CILASTATIN SODIUM\IMIPENEM [Suspect]
     Active Substance: CILASTATIN SODIUM\IMIPENEM
     Indication: Anti-infective therapy
     Dosage: 0.5 G, Q12H
     Route: 041
     Dates: start: 20220822, end: 20220902
  2. CILASTATIN SODIUM\IMIPENEM [Suspect]
     Active Substance: CILASTATIN SODIUM\IMIPENEM
     Indication: Bacteraemia
  3. SODIUM CHLORIDE [Concomitant]
     Active Substance: SODIUM CHLORIDE
     Indication: Bacteraemia
     Dosage: 100 ML, Q12H
     Dates: start: 20220822

REACTIONS (1)
  - Delirium [Recovering/Resolving]

NARRATIVE: CASE EVENT DATE: 20220831
